FAERS Safety Report 20983816 (Version 2)
Quarter: 2022Q3

REPORT INFORMATION
  Report Type: Spontaneous
  Country: IL (occurrence: IL)
  Receive Date: 20220621
  Receipt Date: 20220718
  Transmission Date: 20221027
  Serious: Yes (Other)
  Sender: FDA-Public Use
  Company Number: IL-ABBVIE-22K-082-4439987-00

PATIENT
  Sex: Female

DRUGS (2)
  1. RINVOQ [Suspect]
     Active Substance: UPADACITINIB
     Indication: Rheumatoid arthritis
     Route: 048
  2. RINVOQ [Suspect]
     Active Substance: UPADACITINIB
     Route: 048
     Dates: start: 202206

REACTIONS (7)
  - Asphyxia [Unknown]
  - Cough [Recovering/Resolving]
  - Product dose omission in error [Unknown]
  - Headache [Unknown]
  - Blood pressure increased [Unknown]
  - Therapeutic product effect incomplete [Unknown]
  - Therapeutic response unexpected [Unknown]
